FAERS Safety Report 23676509 (Version 1)
Quarter: 2024Q1

REPORT INFORMATION
  Report Type: Spontaneous
  Country: CN (occurrence: CN)
  Receive Date: 20240327
  Receipt Date: 20240327
  Transmission Date: 20240409
  Serious: Yes (Other)
  Sender: FDA-Public Use
  Company Number: None

PATIENT
  Age: 30 Year
  Sex: Female
  Weight: 66 kg

DRUGS (3)
  1. IFOSFAMIDE [Suspect]
     Active Substance: IFOSFAMIDE
     Indication: Osteosarcoma
     Dosage: 4.2 G, ONE TIME IN ONE DAY, D1-4
     Route: 041
     Dates: start: 20240316, end: 20240319
  2. MESNA [Suspect]
     Active Substance: MESNA
     Indication: Prophylaxis
     Dosage: 4000 MG, QD
     Route: 041
     Dates: start: 20240316, end: 20240319
  3. FUROSEMIDE [Suspect]
     Active Substance: FUROSEMIDE
     Dosage: 10 MG, QD, INTRAVENOUS PUSH
     Route: 050
     Dates: start: 20240316, end: 20240319

REACTIONS (4)
  - Urinary tract disorder [Recovering/Resolving]
  - Hypokalaemia [Recovering/Resolving]
  - Pollakiuria [Recovering/Resolving]
  - Micturition urgency [Recovering/Resolving]

NARRATIVE: CASE EVENT DATE: 20240317
